FAERS Safety Report 19520495 (Version 1)
Quarter: 2021Q3

REPORT INFORMATION
  Report Type: Spontaneous
  Country: US (occurrence: US)
  Receive Date: 20210712
  Receipt Date: 20210712
  Transmission Date: 20211014
  Serious: Yes (Other)
  Sender: FDA-Public Use
  Company Number: US-FOUNDATIONCONSUMERHC-2021-US-011715

PATIENT
  Sex: Female

DRUGS (1)
  1. PLAN B ONE?STEP [Suspect]
     Active Substance: LEVONORGESTREL
     Indication: POST COITAL CONTRACEPTION
     Route: 065
     Dates: end: 20210502

REACTIONS (5)
  - Vaginal haemorrhage [Unknown]
  - Vaginal discharge [Unknown]
  - Menstruation irregular [Unknown]
  - Drug ineffective [Unknown]
  - Pregnancy after post coital contraception [Unknown]
